FAERS Safety Report 5080603-4 (Version None)
Quarter: 2006Q3

REPORT INFORMATION
  Report Type: 
  Country: None (occurrence: None)
  Receive Date: 20060815
  Receipt Date: 20060725
  Transmission Date: 20061208
  Serious: Yes (Hospitalization, Other)
  Sender: FDA-Public Use
  Company Number: IE-GLAXOSMITHKLINE-B0432353A

PATIENT
  Age: 39 Year
  Sex: Female

DRUGS (2)
  1. MALARONE [Suspect]
     Indication: MALARIA PROPHYLAXIS
     Route: 048
     Dates: start: 20060518, end: 20060519
  2. BUSCOPAN [Concomitant]
     Dosage: 10MG UNKNOWN
     Route: 065
     Dates: start: 20060519, end: 20060519

REACTIONS (6)
  - ABNORMAL BEHAVIOUR [None]
  - AGGRESSION [None]
  - AGITATION [None]
  - CONFUSIONAL STATE [None]
  - DELUSION [None]
  - PSYCHOTIC DISORDER [None]
